FAERS Safety Report 8427431-7 (Version None)
Quarter: 2012Q2

REPORT INFORMATION
  Report Type: 
  Country: None (occurrence: None)
  Receive Date: 20120611
  Receipt Date: 20120530
  Transmission Date: 20120825
  Serious: Yes (Hospitalization)
  Sender: FDA-Public Use
  Company Number: CA-BRISTOL-MYERS SQUIBB COMPANY-16655409

PATIENT
  Age: 57 Year
  Sex: Female

DRUGS (8)
  1. HYDROXYCHLOROQUINE SULFATE [Concomitant]
  2. METHOTREXATE [Concomitant]
     Dosage: INJ
  3. ORENCIA [Suspect]
     Indication: RHEUMATOID ARTHRITIS
     Dosage: LAST DOSE ON 30MAY12
     Route: 042
  4. ATIVAN [Concomitant]
  5. MELOXICAM [Concomitant]
  6. FUROSEMIDE [Concomitant]
  7. FOLIC ACID [Concomitant]
  8. PREDNISONE TAB [Concomitant]

REACTIONS (2)
  - ANXIETY [None]
  - DEPRESSION [None]
